FAERS Safety Report 10930376 (Version 1)
Quarter: 2015Q1

REPORT INFORMATION
  Report Type: Spontaneous
  Country: US (occurrence: None)
  Receive Date: 20150318
  Receipt Date: 20150318
  Transmission Date: 20150721
  Serious: No
  Sender: FDA-Public Use
  Company Number: None

PATIENT
  Age: 47 Year
  Sex: Female

DRUGS (1)
  1. HUMIRA [Suspect]
     Active Substance: ADALIMUMAB
     Dosage: INJECCTABLE?EVERY 2 WEEKS
     Route: 058

REACTIONS (2)
  - Anaphylactic reaction [None]
  - Injection site rash [None]

NARRATIVE: CASE EVENT DATE: 20140519
